FAERS Safety Report 9198071 (Version 5)
Quarter: 2014Q1

REPORT INFORMATION
  Report Type: Spontaneous
  Country: GB (occurrence: GB)
  Receive Date: 20130329
  Receipt Date: 20140318
  Transmission Date: 20141002
  Serious: Yes (Death, Other)
  Sender: FDA-Public Use
  Company Number: PHHY2013GB029912

PATIENT
  Age: 87 Year
  Sex: Male
  Weight: 68 kg

DRUGS (9)
  1. SIMVASTATIN [Suspect]
     Indication: HYPERCHOLESTEROLAEMIA
     Dosage: 40 MG, QD
     Route: 048
     Dates: start: 20130211
  2. SIMVASTATIN [Suspect]
     Dosage: 40 MG, QD
     Route: 048
     Dates: start: 2012
  3. SIMVASTATIN [Suspect]
     Dosage: 40 MG, QD
     Route: 048
     Dates: end: 20130218
  4. CLARITHROMYCIN [Suspect]
     Indication: OSTEOMYELITIS
     Dosage: 500 MG, BID
     Route: 048
     Dates: start: 20121101, end: 20130211
  5. CLARITHROMYCIN [Suspect]
     Indication: STAPHYLOCOCCAL INFECTION
  6. FUSIDIC ACID [Suspect]
     Indication: OSTEOMYELITIS
     Dosage: 500 MG, UNK
     Route: 048
     Dates: start: 20121220, end: 20130211
  7. LANSOPRAZOLE [Concomitant]
  8. LANTUS [Concomitant]
  9. ASPIRIN [Concomitant]

REACTIONS (5)
  - Sepsis [Fatal]
  - Rhabdomyolysis [Fatal]
  - Renal failure acute [Not Recovered/Not Resolved]
  - Medication error [Not Recovered/Not Resolved]
  - Incorrect drug administration duration [Unknown]
